FAERS Safety Report 9669140 (Version 1)
Quarter: 2013Q4

REPORT INFORMATION
  Report Type: Spontaneous
  Country: BR (occurrence: BR)
  Receive Date: 20131105
  Receipt Date: 20131105
  Transmission Date: 20140711
  Serious: Yes (Hospitalization)
  Sender: FDA-Public Use
  Company Number: BR-ASTRAZENECA-2013SE80233

PATIENT
  Age: 52 Year
  Sex: Female
  Weight: 76 kg

DRUGS (7)
  1. ABLOK (ATENOLOL) [Suspect]
     Indication: HYPERTENSION
     Route: 048
     Dates: start: 200803
  2. BRILINTA [Suspect]
     Indication: STENT PLACEMENT
     Dosage: BID
     Route: 048
     Dates: start: 20130731
  3. PANTOPRAZOLE [Concomitant]
     Indication: GASTRITIS PROPHYLAXIS
  4. JANUVIA [Concomitant]
     Indication: GLUCOSE TOLERANCE IMPAIRED
     Dates: start: 20130731
  5. FLUOXETINE HYDROCHLORIDE [Concomitant]
     Indication: ANTIDEPRESSANT THERAPY
  6. AAS PROTECT [Concomitant]
     Indication: CARDIAC DISORDER
  7. ATORVASTATIN [Concomitant]
     Indication: BLOOD CHOLESTEROL INCREASED

REACTIONS (2)
  - Vascular rupture [Recovered/Resolved]
  - Weight decreased [Recovering/Resolving]
